FAERS Safety Report 6742024-5 (Version None)
Quarter: 2010Q2

REPORT INFORMATION
  Report Type: 
  Country: None (occurrence: None)
  Receive Date: 20100526
  Receipt Date: 20100518
  Transmission Date: 20101027
  Serious: Yes (Other)
  Sender: FDA-Public Use
  Company Number: NI-JNJFOC-20100508992

PATIENT
  Age: 10 Year
  Sex: Male

DRUGS (1)
  1. RISPERDAL [Suspect]
     Indication: DRUG USE FOR UNKNOWN INDICATION
     Route: 065

REACTIONS (4)
  - AGITATION [None]
  - CRYING [None]
  - HYPERPHAGIA [None]
  - PSYCHOMOTOR HYPERACTIVITY [None]
